FAERS Safety Report 8437309-0 (Version None)
Quarter: 2012Q2

REPORT INFORMATION
  Report Type: 
  Country: None (occurrence: None)
  Receive Date: 20120614
  Receipt Date: 20120308
  Transmission Date: 20120825
  Serious: No
  Sender: FDA-Public Use
  Company Number: US-AMGEN-USASP2011023392

PATIENT
  Age: 58 Year
  Sex: Male

DRUGS (1)
  1. XGEVA [Suspect]
     Indication: METASTASES TO BONE
     Dosage: 1.7 MG, QMO
     Route: 058
     Dates: start: 20110331

REACTIONS (3)
  - PAIN [None]
  - BACK PAIN [None]
  - BONE PAIN [None]
